FAERS Safety Report 11856963 (Version 2)
Quarter: 2016Q1

REPORT INFORMATION
  Report Type: Report from Study
  Country: US (occurrence: US)
  Receive Date: 20151221
  Receipt Date: 20160118
  Transmission Date: 20160526
  Serious: Yes (Hospitalization, Other)
  Sender: FDA-Public Use
  Company Number: US-APOPHARMA-2015AP015303

PATIENT
  Age: 29 Year
  Sex: Male
  Weight: 98 kg

DRUGS (3)
  1. DEFERIPRONE [Suspect]
     Active Substance: DEFERIPRONE
     Indication: APLASIA PURE RED CELL
     Dosage: 15 MG/KG, TID
     Route: 048
     Dates: start: 20151104, end: 201512
  2. DESFERAL [Concomitant]
     Active Substance: DEFEROXAMINE MESYLATE
     Indication: PRODUCT USED FOR UNKNOWN INDICATION
     Route: 065
  3. DEFERIPRONE [Suspect]
     Active Substance: DEFERIPRONE
     Indication: HAEMOCHROMATOSIS

REACTIONS (6)
  - Neutropenia [Recovering/Resolving]
  - Weight decreased [Recovering/Resolving]
  - Blood glucose increased [Recovering/Resolving]
  - White blood cell count decreased [Recovering/Resolving]
  - Dehydration [Unknown]
  - Thyroid hormones increased [Recovering/Resolving]

NARRATIVE: CASE EVENT DATE: 20151210
